FAERS Safety Report 10375407 (Version 1)
Quarter: 2014Q1

REPORT INFORMATION
  Report Type: Spontaneous
  Country: US (occurrence: None)
  Receive Date: 20140306
  Receipt Date: 20140306
  Transmission Date: 20141002
  Serious: Yes (Other)
  Sender: FDA-Public Use
  Company Number: 163-21880-13041655

PATIENT
  Age: 80 Year
  Sex: Female

DRUGS (12)
  1. REVLIMID (LENALIDOMIDE) (CAPSULES) [Suspect]
     Indication: PLASMA CELL MYELOMA
     Route: 048
     Dates: start: 20130207, end: 201302
  2. ACIPHEX (RABEPRAZOLE SODIUM) [Concomitant]
  3. NORVASC (AMLODIPINE BESILATE) [Concomitant]
  4. CALCITONIN [Concomitant]
  5. CALCIUM + D (OS-CAL) [Concomitant]
  6. FOSAMAX (ALENDRONATE SODIUM) [Concomitant]
  7. KETOROLAC [Concomitant]
  8. LISINOPRIL [Concomitant]
  9. MOBIC (MELOXICAM) [Concomitant]
  10. ZOMETA (ZOLEDRONIC ACID) [Concomitant]
  11. DECADRON (DEXAMETHASONE) [Concomitant]
  12. VELCADE (BORTEZOMIB) [Concomitant]

REACTIONS (3)
  - Thrombocytopenia [None]
  - Leukopenia [None]
  - Anaemia [None]
